FAERS Safety Report 4302465-2 (Version None)
Quarter: 2004Q1

REPORT INFORMATION
  Report Type: 
  Country: None (occurrence: None)
  Receive Date: 20040220
  Receipt Date: 20040211
  Transmission Date: 20041129
  Serious: Yes (Other)
  Sender: FDA-Public Use
  Company Number: ZONI001325

PATIENT
  Age: 40 Year
  Sex: Female
  Weight: 136.0791 kg

DRUGS (6)
  1. ZONEGRAN [Suspect]
     Indication: DEPRESSION
     Dosage: ORAL
     Route: 048
     Dates: start: 20031201, end: 20040113
  2. LEXAPRO [Suspect]
     Indication: DEPRESSION
     Dosage: 20 MG DAILY
     Dates: start: 20031015, end: 20040113
  3. KLONOPIN [Concomitant]
  4. FLEXERIL [Concomitant]
  5. BEXTRA [Concomitant]
  6. NEXIUM [Concomitant]

REACTIONS (2)
  - ECHOCARDIOGRAM ABNORMAL [None]
  - ELECTROCARDIOGRAM QT PROLONGED [None]
